FAERS Safety Report 14843765 (Version 1)
Quarter: 2018Q2

REPORT INFORMATION
  Report Type: Spontaneous
  Country: PE (occurrence: PE)
  Receive Date: 20180503
  Receipt Date: 20180503
  Transmission Date: 20180711
  Serious: Yes (Other)
  Sender: FDA-Public Use
  Company Number: PE-MYLANLABS-2018M1028163

PATIENT
  Age: 37 Year
  Sex: Male

DRUGS (9)
  1. VASOPRESSIN. [Suspect]
     Active Substance: VASOPRESSIN
     Indication: TOXIC SHOCK SYNDROME STREPTOCOCCAL
     Route: 065
  2. MEROPENEM. [Concomitant]
     Active Substance: MEROPENEM
     Indication: TOXIC SHOCK SYNDROME STREPTOCOCCAL
     Route: 065
  3. NOREPINEPHRINE. [Suspect]
     Active Substance: NOREPINEPHRINE
     Indication: TOXIC SHOCK SYNDROME STREPTOCOCCAL
     Route: 065
  4. CEFTRIAXONE. [Concomitant]
     Active Substance: CEFTRIAXONE
     Indication: TOXIC SHOCK SYNDROME STREPTOCOCCAL
     Route: 065
  5. HYDROCORTISONE. [Suspect]
     Active Substance: HYDROCORTISONE
     Indication: TOXIC SHOCK SYNDROME STREPTOCOCCAL
     Route: 065
  6. IMMUNOGLOBULIN                     /00025201/ [Suspect]
     Active Substance: HUMAN IMMUNOGLOBULIN G
     Indication: TOXIC SHOCK SYNDROME STREPTOCOCCAL
     Dosage: 1G/KG WEIGHT ON DAY 1 AND 2
     Route: 042
  7. CLINDAMYCIN. [Concomitant]
     Active Substance: CLINDAMYCIN
     Indication: TOXIC SHOCK SYNDROME STREPTOCOCCAL
     Route: 065
  8. DOPAMINE [Suspect]
     Active Substance: DOPAMINE\DOPAMINE HYDROCHLORIDE
     Indication: TOXIC SHOCK SYNDROME STREPTOCOCCAL
     Route: 065
  9. VANCOMYCIN [Concomitant]
     Active Substance: VANCOMYCIN
     Indication: TOXIC SHOCK SYNDROME STREPTOCOCCAL
     Route: 065

REACTIONS (2)
  - No adverse event [Unknown]
  - Drug ineffective [Unknown]
